FAERS Safety Report 10395610 (Version 1)
Quarter: 2014Q1

REPORT INFORMATION
  Report Type: Spontaneous
  Country: US (occurrence: None)
  Receive Date: 20130705
  Receipt Date: 20130705
  Transmission Date: 20141002
  Serious: Yes (Hospitalization)
  Sender: FDA-Public Use
  Company Number: RB-34295-2011

PATIENT
  Age: 45 Year
  Sex: Male

DRUGS (5)
  1. SUBOXONE 8 MG [Suspect]
     Indication: DRUG DEPENDENCE
     Route: 060
     Dates: start: 2011, end: 201301
  2. LITHIUM [Suspect]
     Indication: DEPRESSION
     Dates: end: 2013
  3. XANAX [Concomitant]
  4. PROZAC [Concomitant]
  5. ABILIFY [Concomitant]

REACTIONS (3)
  - Drug withdrawal syndrome [None]
  - Overdose [None]
  - Feeling abnormal [None]
